FAERS Safety Report 11789624 (Version 1)
Quarter: 2015Q4

REPORT INFORMATION
  Report Type: Spontaneous
  Country: US (occurrence: US)
  Receive Date: 20151201
  Receipt Date: 20151201
  Transmission Date: 20160305
  Serious: Yes (Other)
  Sender: FDA-Public Use
  Company Number: US-ACORDA-ACO_119654_2015

PATIENT
  Age: 55 Year
  Sex: Female

DRUGS (1)
  1. AMPYRA [Suspect]
     Active Substance: DALFAMPRIDINE
     Indication: PRODUCT USED FOR UNKNOWN INDICATION
     Dosage: UNK
     Route: 065

REACTIONS (7)
  - Skin discolouration [Unknown]
  - Peripheral coldness [Unknown]
  - Therapy cessation [Recovered/Resolved]
  - Arterial occlusive disease [Unknown]
  - Ovarian disorder [Unknown]
  - Uterine disorder [Unknown]
  - Renal failure [Unknown]
